FAERS Safety Report 18192381 (Version 1)
Quarter: 2020Q3

REPORT INFORMATION
  Report Type: Report from Study
  Country: JP (occurrence: JP)
  Receive Date: 20200825
  Receipt Date: 20200825
  Transmission Date: 20201103
  Serious: Yes (Hospitalization)
  Sender: FDA-Public Use
  Company Number: JP-TAKEDA-2019TUS074255

PATIENT
  Age: 70 Year
  Sex: Male
  Weight: 59 kg

DRUGS (32)
  1. VENETOCLAX. [Suspect]
     Active Substance: VENETOCLAX
     Dosage: 400 MILLIGRAM, QD
     Route: 048
     Dates: start: 20180130, end: 20190622
  2. DEXAMETHASONE. [Suspect]
     Active Substance: DEXAMETHASONE
     Dosage: 12 MILLIGRAM
     Route: 048
     Dates: start: 20190129, end: 20190619
  3. CALONAL [Suspect]
     Active Substance: ACETAMINOPHEN
     Indication: PRODUCT USED FOR UNKNOWN INDICATION
     Dosage: UNK
     Route: 065
  4. EDOXABAN TOSILATE MONOHYDRATE [Concomitant]
     Active Substance: EDOXABAN TOSYLATE
     Indication: ATRIAL FIBRILLATION
     Dosage: 30 MILLIGRAM, QD
     Route: 048
     Dates: start: 20180116
  5. AMLODIPINE [Concomitant]
     Active Substance: AMLODIPINE BESYLATE
     Dosage: 5 MILLIGRAM, BID
     Route: 048
     Dates: start: 20171024, end: 20180112
  6. UNASYN [Concomitant]
     Active Substance: AMPICILLIN SODIUM\SULBACTAM SODIUM
     Indication: PNEUMONIA
     Dosage: 1125 MILLIGRAM, TID
     Route: 048
     Dates: start: 20190702, end: 20190708
  7. VENETOCLAX. [Suspect]
     Active Substance: VENETOCLAX
     Indication: PLASMA CELL MYELOMA
     Dosage: 800 MILLIGRAM, QD
     Route: 048
     Dates: start: 20171031, end: 20171226
  8. VENETOCLAX. [Suspect]
     Active Substance: VENETOCLAX
     Dosage: 100 MILLIGRAM, QD
     Route: 048
     Dates: start: 20190712, end: 20191209
  9. EPINASTINE HYDROCHLORIDE. [Concomitant]
     Active Substance: EPINASTINE HYDROCHLORIDE
     Indication: PRURITUS
     Dosage: 20 MILLIGRAM, BID
     Route: 048
     Dates: start: 20171121, end: 20171219
  10. AMLODIPINE [Concomitant]
     Active Substance: AMLODIPINE BESYLATE
     Indication: HYPERTENSION
     Dosage: 2.5 MILLIGRAM, QD
     Route: 048
     Dates: start: 20180213, end: 20190521
  11. BORTEZOMIB. [Suspect]
     Active Substance: BORTEZOMIB
     Dosage: 1.57 MILLIGRAM/SQ. METER
     Route: 058
     Dates: start: 20180130, end: 20180209
  12. BORTEZOMIB. [Suspect]
     Active Substance: BORTEZOMIB
     Dosage: 1.09 MILLIGRAM/SQ. METER
     Route: 058
     Dates: start: 20180220, end: 20191126
  13. VENETOCLAX. [Suspect]
     Active Substance: VENETOCLAX
     Dosage: 600 MILLIGRAM, QD
     Route: 048
     Dates: start: 20180105, end: 20180111
  14. DEXAMETHASONE. [Suspect]
     Active Substance: DEXAMETHASONE
     Indication: PLASMA CELL MYELOMA
     Dosage: 20 MILLIGRAM
     Route: 048
     Dates: start: 20171031, end: 20181212
  15. DEXAMETHASONE. [Suspect]
     Active Substance: DEXAMETHASONE
     Dosage: 8 MILLIGRAM
     Route: 048
     Dates: start: 20190723, end: 20191127
  16. MEROPENEM. [Suspect]
     Active Substance: MEROPENEM
     Indication: PRODUCT USED FOR UNKNOWN INDICATION
     Dosage: UNK
     Route: 065
  17. VALACICLOVIR [Concomitant]
     Active Substance: VALACYCLOVIR HYDROCHLORIDE
     Indication: HERPES ZOSTER
     Dosage: 500 MILLIGRAM, QD
     Route: 048
     Dates: start: 20171030, end: 20191224
  18. SENNOSIDE                          /00571902/ [Concomitant]
     Active Substance: SENNOSIDES A AND B
     Indication: CONSTIPATION
     Dosage: UNK
     Route: 048
     Dates: start: 20171107
  19. MAGNESIUM OXIDE. [Concomitant]
     Active Substance: MAGNESIUM OXIDE
     Indication: CONSTIPATION
     Dosage: 330 MILLIGRAM
     Route: 048
     Dates: start: 20171110
  20. EPINASTINE HYDROCHLORIDE. [Concomitant]
     Active Substance: EPINASTINE HYDROCHLORIDE
     Dosage: 20 MILLIGRAM, BID
     Route: 048
     Dates: start: 20190903
  21. BISOPROLOL [Concomitant]
     Active Substance: BISOPROLOL
     Indication: ATRIAL FIBRILLATION
     Dosage: 2.5 MILLIGRAM, QD
     Route: 048
     Dates: start: 20180116
  22. UNASYN [Concomitant]
     Active Substance: AMPICILLIN SODIUM\SULBACTAM SODIUM
     Indication: ANTIBIOTIC PROPHYLAXIS
     Dosage: 375 MILLIGRAM, QD
     Route: 048
     Dates: start: 20190709, end: 20191224
  23. ITRACONAZOLE. [Concomitant]
     Active Substance: ITRACONAZOLE
     Indication: PNEUMONIA
     Dosage: 200 MILLIGRAM, QD
     Route: 048
     Dates: start: 20190702, end: 20190709
  24. AMLODIPINE [Concomitant]
     Active Substance: AMLODIPINE BESYLATE
     Dosage: 5 MILLIGRAM, QD
     Route: 048
     Dates: start: 20191112
  25. DAIPHEN [Concomitant]
     Active Substance: SULFAMETHOXAZOLE\TRIMETHOPRIM
     Indication: ANTIBIOTIC PROPHYLAXIS
     Dosage: UNK, QD
     Route: 048
     Dates: start: 20190419, end: 20191224
  26. ITRACONAZOLE. [Concomitant]
     Active Substance: ITRACONAZOLE
     Indication: ANTIBIOTIC PROPHYLAXIS
     Dosage: 100 MILLIGRAM, QD
     Route: 048
     Dates: start: 20190709
  27. ETIZOLAM [Concomitant]
     Active Substance: ETIZOLAM
     Indication: INSOMNIA
     Dosage: 1 MILLIGRAM
     Route: 048
     Dates: start: 20170310
  28. IODINE. [Concomitant]
     Active Substance: IODINE
     Indication: INFECTION PROPHYLAXIS
     Dosage: 30 MILLILITER
     Route: 049
     Dates: start: 20190416
  29. UNASYN [Concomitant]
     Active Substance: AMPICILLIN SODIUM\SULBACTAM SODIUM
     Dosage: 1125 MILLIGRAM
     Route: 048
     Dates: start: 20190427, end: 20190503
  30. BORTEZOMIB. [Suspect]
     Active Substance: BORTEZOMIB
     Indication: PLASMA CELL MYELOMA
     Dosage: 2.18 MILLIGRAM/SQ. METER
     Route: 058
     Dates: start: 20171031, end: 20180109
  31. REBAMIPIDE [Concomitant]
     Active Substance: REBAMIPIDE
     Indication: GASTROINTESTINAL DISORDER THERAPY
     Dosage: 100 MILLIGRAM, TID
     Route: 048
     Dates: start: 20170328
  32. EPINASTINE HYDROCHLORIDE. [Concomitant]
     Active Substance: EPINASTINE HYDROCHLORIDE
     Dosage: 20 MILLIGRAM, BID
     Route: 048
     Dates: start: 20180703, end: 20190219

REACTIONS (2)
  - Pneumonia [Recovered/Resolved]
  - Hepatitis B reactivation [Not Recovered/Not Resolved]

NARRATIVE: CASE EVENT DATE: 20191210
